FAERS Safety Report 8607650-7 (Version None)
Quarter: 2012Q3

REPORT INFORMATION
  Report Type: 
  Country: None (occurrence: None)
  Receive Date: 20120821
  Receipt Date: 20120809
  Transmission Date: 20120928
  Serious: Yes (Other)
  Sender: FDA-Public Use
  Company Number: JP-UCBSA-063699

PATIENT
  Age: 55 Year
  Sex: Male

DRUGS (3)
  1. CARBAMAZEPINE [Concomitant]
     Dosage: DOSE: 200 MG
     Route: 048
  2. KEPPRA [Suspect]
     Indication: EPILEPSY
     Route: 048
  3. CARBAMAZEPINE [Concomitant]
     Dosage: DAILY DOSE: 600 MG
     Route: 048

REACTIONS (1)
  - NEUROLEPTIC MALIGNANT SYNDROME [None]
